FAERS Safety Report 7309009-1 (Version None)
Quarter: 2011Q1

REPORT INFORMATION
  Report Type: 
  Country: None (occurrence: None)
  Receive Date: 20110223
  Receipt Date: 20110208
  Transmission Date: 20110831
  Serious: Yes (Other)
  Sender: FDA-Public Use
  Company Number: US-BAYER-2011-009297

PATIENT
  Sex: Male

DRUGS (3)
  1. BETASERON [Suspect]
     Indication: RELAPSING-REMITTING MULTIPLE SCLEROSIS
     Dosage: 8 MIU, QOD
     Dates: start: 19970523
  2. DILANTIN [Concomitant]
     Indication: CONVULSION
     Dosage: UNK
     Dates: start: 20090801
  3. DILANTIN [Concomitant]
     Dosage: 300 MG, DAILY
     Dates: start: 20101101

REACTIONS (7)
  - FALL [None]
  - GAIT DISTURBANCE [None]
  - ASTHENIA [None]
  - HYPERHIDROSIS [None]
  - LOSS OF CONSCIOUSNESS [None]
  - COLD SWEAT [None]
  - CONVULSION [None]
